FAERS Safety Report 12185380 (Version 1)
Quarter: 2016Q1

REPORT INFORMATION
  Report Type: Spontaneous
  Country: JP (occurrence: JP)
  Receive Date: 20160316
  Receipt Date: 20160316
  Transmission Date: 20160526
  Serious: Yes (Other)
  Sender: FDA-Public Use
  Company Number: JP-MYLANLABS-2016M1009345

PATIENT

DRUGS (6)
  1. FLUOROURACIL. [Suspect]
     Active Substance: FLUOROURACIL
     Indication: RECTAL CANCER
     Dosage: 400 MG/M2 ON DAY 1, EVERY 2 WEEKS (BOLUS)- 6 COURSES
     Route: 065
  2. CETUXIMAB [Suspect]
     Active Substance: CETUXIMAB
     Indication: RECTAL CANCER
     Dosage: 400 MG/M2 ON DAY 1 OF FIRST COURSE
     Route: 065
  3. FOLINIC ACID [Suspect]
     Active Substance: LEUCOVORIN
     Indication: RECTAL CANCER
     Dosage: 200 MG/M2 ON DAY 1 (6 COURSES)
     Route: 065
  4. OXALIPLATIN. [Suspect]
     Active Substance: OXALIPLATIN
     Indication: RECTAL CANCER
     Dosage: 85 MG/M2 DAY 1 EVERY 2 WEEKS (6 COURSES)
     Route: 065
  5. FLUOROURACIL. [Suspect]
     Active Substance: FLUOROURACIL
     Dosage: 2400 MG/M2 ON DAY 1-3, EVERY 2 WEEKS (INFUSION)- 6 COURSES
     Route: 065
  6. CETUXIMAB [Suspect]
     Active Substance: CETUXIMAB
     Dosage: 250 MG/M2 ON DAY 1, AND 8 (POST 1ST COURSE)
     Route: 065

REACTIONS (2)
  - Acne [Unknown]
  - Anaphylactic shock [Recovering/Resolving]
